FAERS Safety Report 7032821-3 (Version None)
Quarter: 2010Q4

REPORT INFORMATION
  Report Type: 
  Country: None (occurrence: None)
  Receive Date: 20101005
  Receipt Date: 20080623
  Transmission Date: 20110411
  Serious: Yes (Hospitalization)
  Sender: FDA-Public Use
  Company Number: 2007PV000047

PATIENT
  Age: 50 Year
  Sex: Female

DRUGS (10)
  1. DEPOCYT [Suspect]
     Indication: LYMPHOMA
     Dosage: 50 MG; QOW; INTH
     Route: 037
     Dates: start: 20070814, end: 20071018
  2. DEXAMETHASONE [Concomitant]
  3. RITUXIMAB [Concomitant]
  4. CYCLOPHOSPHAMIDE [Concomitant]
  5. VINCRISTINE [Concomitant]
  6. PREDNISOLONE [Concomitant]
  7. DOXORUBICIN HCL [Concomitant]
  8. METHOTREXATE [Concomitant]
  9. ETOPOSIDE [Concomitant]
  10. ARACYTINE [Concomitant]

REACTIONS (7)
  - ABASIA [None]
  - AREFLEXIA [None]
  - CAUDA EQUINA SYNDROME [None]
  - DRY MOUTH [None]
  - FAECAL INCONTINENCE [None]
  - MASS [None]
  - URINARY INCONTINENCE [None]
